FAERS Safety Report 13050384 (Version 2)
Quarter: 2017Q3

REPORT INFORMATION
  Report Type: Report from Study
  Country: None (occurrence: BR)
  Receive Date: 20161221
  Receipt Date: 20170905
  Transmission Date: 20171127
  Serious: Yes (Other)
  Sender: FDA-Public Use
  Company Number: BR-ABBVIE-16P-020-1817873-00

PATIENT
  Sex: Male
  Weight: 72 kg

DRUGS (7)
  1. PANTOPRAZOLE [Concomitant]
     Active Substance: PANTOPRAZOLE
     Indication: DYSPEPSIA
     Dosage: 40MG DAILY IN FASTING
  2. SYNTHROID [Suspect]
     Active Substance: LEVOTHYROXINE SODIUM
     Indication: THYROID DISORDER
     Dosage: 75 MCG DAILY IN MORNING
     Route: 048
  3. SYNTHROID [Suspect]
     Active Substance: LEVOTHYROXINE SODIUM
     Dosage: 75 MCG DAILY IN MORNING
     Route: 048
     Dates: start: 2015
  4. AAS [Concomitant]
     Active Substance: ASPIRIN
     Indication: ISCHAEMIA
     Dosage: 1 TABLET DAILY (MIDDAY)
     Dates: start: 2001
  5. ALENIA [Concomitant]
     Active Substance: BUDESONIDE\FORMOTEROL FUMARATE
     Indication: LUNG DISORDER
     Dates: start: 2000
  6. AAS [Concomitant]
     Active Substance: ASPIRIN
     Indication: CEREBROVASCULAR ACCIDENT
  7. AEROLIN [Concomitant]
     Active Substance: ALBUTEROL
     Indication: EMPHYSEMA
     Dosage: WHEN PRESENTS CRISIS
     Route: 055

REACTIONS (4)
  - Oesophageal carcinoma [Not Recovered/Not Resolved]
  - Monoplegia [Recovered/Resolved]
  - Depression [Not Recovered/Not Resolved]
  - Cerebral ischaemia [Recovered/Resolved]

NARRATIVE: CASE EVENT DATE: 2013
